FAERS Safety Report 9262575 (Version 3)
Quarter: 2013Q2

REPORT INFORMATION
  Report Type: Spontaneous
  Country: FR (occurrence: None)
  Receive Date: 20130426
  Receipt Date: 20130521
  Transmission Date: 20140414
  Serious: Yes (Death)
  Sender: FDA-Public Use
  Company Number: 221248

PATIENT
  Age: 60 Year
  Sex: Female

DRUGS (3)
  1. INNOHEP [Suspect]
     Indication: PRODUCT USED FOR UNKNOWN INDICATION
     Route: 058
     Dates: start: 20121207, end: 20121212
  2. HEPARIN [Suspect]
     Indication: PRODUCT USED FOR UNKNOWN INDICATION
     Route: 042
     Dates: start: 20121204, end: 20121204
  3. LOVENOX [Suspect]
     Indication: PRODUCT USED FOR UNKNOWN INDICATION
     Route: 058
     Dates: start: 20121205, end: 20121206

REACTIONS (17)
  - Malaise [None]
  - Bradycardia [None]
  - Vomiting [None]
  - Presyncope [None]
  - Electrocardiogram ST segment elevation [None]
  - Haemodynamic instability [None]
  - Aortic thrombosis [None]
  - Coronary artery occlusion [None]
  - Heparin-induced thrombocytopenia [None]
  - Extremity necrosis [None]
  - Peripheral ischaemia [None]
  - Ventricular dysfunction [None]
  - Myocardial oedema [None]
  - Cerebrovascular accident [None]
  - Brain oedema [None]
  - Cerebral ischaemia [None]
  - Myocardial infarction [None]
